FAERS Safety Report 17650666 (Version 2)
Quarter: 2020Q2

REPORT INFORMATION
  Report Type: Report from Study
  Country: US (occurrence: US)
  Receive Date: 20200409
  Receipt Date: 20200504
  Transmission Date: 20200713
  Serious: Yes (Hospitalization, Other)
  Sender: FDA-Public Use
  Company Number: US-B.I. PHARMACEUTICALS,INC./RIDGEFIELD-2018-BI-059768

PATIENT
  Age: 77 Year
  Sex: Female

DRUGS (2)
  1. OXYGEN. [Suspect]
     Active Substance: OXYGEN
     Indication: COUGH
     Route: 065
  2. OFEV [Suspect]
     Active Substance: NINTEDANIB
     Indication: IDIOPATHIC PULMONARY FIBROSIS
     Dosage: 100 MG EVERY 12 HOURS
     Route: 048
     Dates: start: 20181212, end: 20200226

REACTIONS (26)
  - Diarrhoea [Unknown]
  - Contusion [Recovering/Resolving]
  - Muscle spasms [Unknown]
  - Wheezing [Recovering/Resolving]
  - Cough [Recovering/Resolving]
  - Urinary tract infection [Recovering/Resolving]
  - Ulcer haemorrhage [Not Recovered/Not Resolved]
  - Pneumonia [Not Recovered/Not Resolved]
  - Anaemia [Unknown]
  - Cough [Unknown]
  - Feeling abnormal [Recovering/Resolving]
  - Muscle spasms [Not Recovered/Not Resolved]
  - Contusion [Unknown]
  - Internal haemorrhage [Unknown]
  - Respiratory tract congestion [Not Recovered/Not Resolved]
  - Pollakiuria [Not Recovered/Not Resolved]
  - Insomnia [Unknown]
  - Dehydration [Recovering/Resolving]
  - Headache [Recovering/Resolving]
  - Bacterial infection [Unknown]
  - Diarrhoea [Recovered/Resolved]
  - Gastrooesophageal reflux disease [Not Recovered/Not Resolved]
  - Haematuria [Recovering/Resolving]
  - Pleural effusion [Recovering/Resolving]
  - Idiopathic pulmonary fibrosis [Not Recovered/Not Resolved]
  - Nausea [Recovered/Resolved]

NARRATIVE: CASE EVENT DATE: 20190719
